FAERS Safety Report 19482900 (Version 1)
Quarter: 2021Q3

REPORT INFORMATION
  Report Type: Spontaneous
  Country: US (occurrence: US)
  Receive Date: 20210701
  Receipt Date: 20210701
  Transmission Date: 20211014
  Serious: Yes (Death, Other)
  Sender: FDA-Public Use
  Company Number: US-BAYER-2021-163311

PATIENT
  Age: 81 Year
  Sex: Female
  Weight: 67 kg

DRUGS (2)
  1. LOVENOX HP [Suspect]
     Active Substance: ENOXAPARIN SODIUM
     Dosage: UNK, BID
  2. ACETYLSALICYLIC ACID [Suspect]
     Active Substance: ASPIRIN
     Dosage: UNK

REACTIONS (4)
  - Retroperitoneal haematoma [Fatal]
  - Labelled drug-drug interaction medication error [None]
  - Haemoglobin decreased [None]
  - Multiple organ dysfunction syndrome [None]
